FAERS Safety Report 9841727 (Version 2)
Quarter: 2014Q1

REPORT INFORMATION
  Report Type: Spontaneous
  Country: US (occurrence: US)
  Receive Date: 20140124
  Receipt Date: 20140303
  Transmission Date: 20141002
  Serious: Yes (Death)
  Sender: FDA-Public Use
  Company Number: US-JNJFOC-20140113053

PATIENT
  Age: 69 Year
  Sex: Male

DRUGS (1)
  1. LEUSTATIN [Suspect]
     Indication: HAIRY CELL LEUKAEMIA
     Dosage: AS A 7-DAY CONTINUOUS INTRAVENOUS INFUSION
     Route: 042
     Dates: start: 19911120, end: 19911127

REACTIONS (1)
  - Metastatic renal cell carcinoma [Fatal]
